FAERS Safety Report 8894801 (Version 1)
Quarter: 2012Q4

REPORT INFORMATION
  Report Type: 
  Country: US (occurrence: US)
  Receive Date: 20121107
  Receipt Date: 20121107
  Transmission Date: 20130627
  Serious: No
  Sender: FDA-Public Use
  Company Number: US-AMGEN-USASP2011049913

PATIENT
  Age: 44 Year
  Sex: Female
  Weight: 81.63 kg

DRUGS (8)
  1. ENBREL [Suspect]
     Indication: PRODUCT USED FOR UNKNOWN INDICATION
     Dosage: 25 mg, 2 times/wk
  2. METHOTREXATE [Concomitant]
     Dosage: 2.5 mg, UNK
  3. MELOXICAM [Concomitant]
     Dosage: 15 mg, UNK
  4. PREDNISONE [Concomitant]
     Dosage: 10 mg, UNK
  5. FOLIC ACID [Concomitant]
     Dosage: 5 mg, UNK
  6. BUSPIRONE [Concomitant]
     Dosage: 10 mg, UNK
  7. VITAMIN D /00107901/ [Concomitant]
     Dosage: 400 unit, UNK
  8. CALCIUM [Concomitant]
     Dosage: 600 UNK, UNK

REACTIONS (1)
  - Nasopharyngitis [Unknown]
